FAERS Safety Report 4624401-1 (Version None)
Quarter: 2005Q1

REPORT INFORMATION
  Report Type: 
  Country: None (occurrence: None)
  Receive Date: 20050330
  Receipt Date: 20050330
  Transmission Date: 20050727
  Serious: Yes (Life-Threatening, Hospitalization)
  Sender: FDA-Public Use
  Company Number: None

PATIENT
  Age: 75 Year
  Sex: Female
  Weight: 90.6 kg

DRUGS (12)
  1. LOVENOX [Suspect]
     Indication: ATRIAL FIBRILLATION
     Dosage: 90MG   Q24HRS   SUBCUTANEO
     Route: 058
     Dates: start: 20050319, end: 20050322
  2. WARFARIN [Suspect]
     Indication: ATRIAL FIBRILLATION
     Dosage: 4.5,3MG   DAILY    ORAL
     Route: 048
  3. IRON SULFATETHIAMIN COMPOUND TAB [Concomitant]
  4. EPOGEN [Concomitant]
  5. CEFTRIAXONE [Concomitant]
  6. DOPAMINE [Concomitant]
  7. POTASSIUM CHLORIDE [Concomitant]
  8. METOPROLOL TARTRATE [Concomitant]
  9. FAMOTIDINE [Concomitant]
  10. HYDROCORTISONE [Concomitant]
  11. IPRATROPIUM BROMIDE [Concomitant]
  12. ALBUTEROL [Concomitant]

REACTIONS (5)
  - ACUTE RESPIRATORY FAILURE [None]
  - GROIN PAIN [None]
  - HAEMATOMA [None]
  - LOCAL SWELLING [None]
  - RENAL FAILURE ACUTE [None]
